FAERS Safety Report 6756745-1 (Version None)
Quarter: 2010Q2

REPORT INFORMATION
  Report Type: 
  Country: None (occurrence: None)
  Receive Date: 20100604
  Receipt Date: 20100524
  Transmission Date: 20101027
  Serious: Yes (Death)
  Sender: FDA-Public Use
  Company Number: FR-JNJFOC-20100510450

PATIENT
  Sex: Female

DRUGS (4)
  1. DOXORUBICIN HCL [Suspect]
     Indication: OVARIAN CANCER RECURRENT
     Route: 042
  2. CARBOPLATIN [Suspect]
     Indication: OVARIAN CANCER RECURRENT
     Dosage: AUC 5
     Route: 065
  3. SEROTONIN ANTAGONISTS [Concomitant]
     Indication: ANTIEMETIC SUPPORTIVE CARE
  4. CORTICOSTEROID [Concomitant]
     Indication: ANTIEMETIC SUPPORTIVE CARE

REACTIONS (1)
  - CEREBRAL HAEMORRHAGE [None]
